FAERS Safety Report 4840554-4 (Version None)
Quarter: 2005Q4

REPORT INFORMATION
  Report Type: 
  Country: None (occurrence: None)
  Receive Date: 20051130
  Receipt Date: 20051013
  Transmission Date: 20060501
  Serious: No
  Sender: FDA-Public Use
  Company Number: US-BRISTOL-MYERS SQUIBB COMPANY-13144100

PATIENT

DRUGS (3)
  1. ERBITUX [Suspect]
     Route: 042
  2. AVASTIN [Concomitant]
  3. IRINOTECAN HCL [Concomitant]

REACTIONS (1)
  - BACK PAIN [None]
